FAERS Safety Report 22626703 (Version 2)
Quarter: 2023Q2

REPORT INFORMATION
  Report Type: Report from Study
  Country: US (occurrence: US)
  Receive Date: 20230621
  Receipt Date: 20230626
  Transmission Date: 20230721
  Serious: Yes (Hospitalization)
  Sender: FDA-Public Use
  Company Number: US-JNJFOC-20230439811

PATIENT
  Age: 66 Year
  Sex: Female

DRUGS (22)
  1. SELEXIPAG [Suspect]
     Active Substance: SELEXIPAG
     Indication: Pulmonary arterial hypertension
     Dosage: 1/12/2022 TO 17/2/2023  RAN OUT OF DRUG AND FINANCIALLY?25/2/2023  OBTAINED GRANT
     Route: 048
     Dates: start: 20221201
  2. SELEXIPAG [Suspect]
     Active Substance: SELEXIPAG
     Dosage: USING 200 AND 800 UG STRENGTHS
     Route: 048
     Dates: start: 202210
  3. ACETAMINOPHEN [Concomitant]
     Active Substance: ACETAMINOPHEN
     Route: 048
  4. ACETAMINOPHEN [Concomitant]
     Active Substance: ACETAMINOPHEN
     Route: 048
  5. ALBUTEROL [Concomitant]
     Active Substance: ALBUTEROL
     Dosage: 108 (90 BASE) MCG/PUFF INHALER
  6. METOPROLOL SUCCINATE [Concomitant]
     Active Substance: METOPROLOL SUCCINATE
     Dosage: 50 MG EXTENDED-RELEASE TABLET
  7. CITALOPRAM [Concomitant]
     Active Substance: CITALOPRAM HYDROBROMIDE
     Route: 048
  8. INSULIN GLARGINE [Concomitant]
     Active Substance: INSULIN GLARGINE
     Dosage: 100 UNIT/ML SOLN
  9. FOLIC ACID [Concomitant]
     Active Substance: FOLIC ACID
     Route: 048
  10. ONDANSETRON [Concomitant]
     Active Substance: ONDANSETRON
     Route: 048
  11. LOPERAMIDE [Concomitant]
     Active Substance: LOPERAMIDE
     Route: 048
  12. ATORVASTATIN [Concomitant]
     Active Substance: ATORVASTATIN
     Route: 048
  13. SPIRONOLACTONE [Concomitant]
     Active Substance: SPIRONOLACTONE
     Route: 048
  14. MAGNESIUM OXIDE [Concomitant]
     Active Substance: MAGNESIUM OXIDE
     Route: 048
  15. SACUBITRIL\VALSARTAN [Concomitant]
     Active Substance: SACUBITRIL\VALSARTAN
     Dosage: 24-26 MG TABS TABLET
  16. LEVOTHYROXINE [Concomitant]
     Active Substance: LEVOTHYROXINE
     Route: 048
  17. ELIQUIS [Concomitant]
     Active Substance: APIXABAN
     Route: 048
  18. TADALAFIL [Concomitant]
     Active Substance: TADALAFIL
     Indication: Pulmonary arterial hypertension
     Route: 048
  19. ALLOPURINOL [Concomitant]
     Active Substance: ALLOPURINOL
     Route: 048
  20. PANTOPRAZOLE [Concomitant]
     Active Substance: PANTOPRAZOLE
  21. EZETIMIBE [Concomitant]
     Active Substance: EZETIMIBE
     Route: 048
  22. TORSEMIDE [Concomitant]
     Active Substance: TORSEMIDE
     Route: 048

REACTIONS (3)
  - Fluid retention [Recovering/Resolving]
  - Headache [Recovered/Resolved]
  - Pain in extremity [Not Recovered/Not Resolved]

NARRATIVE: CASE EVENT DATE: 20230413
